FAERS Safety Report 8765674 (Version 1)
Quarter: 2012Q4

REPORT INFORMATION
  Report Type: 
  Country: US (occurrence: US)
  Receive Date: 20120904
  Receipt Date: 20120904
  Transmission Date: 20130627
  Serious: Yes (Other)
  Sender: FDA-Public Use
  Company Number: PHEH2012US017022

PATIENT
  Sex: Male

DRUGS (12)
  1. ZOMETA [Suspect]
  2. INSULIN [Concomitant]
  3. SYNTHROID [Concomitant]
  4. GABAPENTIN [Concomitant]
  5. ASPIRIN [Concomitant]
  6. CALCIUM [Concomitant]
  7. VITAMIN D [Concomitant]
  8. VITAMIN B12 [Concomitant]
  9. REVLIMID [Concomitant]
  10. LUPRIN [Concomitant]
  11. MIDODRINE [Concomitant]
  12. OXYCODONE [Concomitant]

REACTIONS (9)
  - Ischaemic stroke [Unknown]
  - Plasma cell myeloma [Unknown]
  - Prostate cancer metastatic [Unknown]
  - Autonomic neuropathy [Unknown]
  - Basedow^s disease [Unknown]
  - Osteoporosis [Unknown]
  - Hypoglycaemia [Unknown]
  - Orthostatic hypertension [Unknown]
  - Presyncope [Unknown]
